FAERS Safety Report 5309114-5 (Version None)
Quarter: 2007Q2

REPORT INFORMATION
  Report Type: 
  Country: None (occurrence: None)
  Receive Date: 20070413
  Receipt Date: 20070402
  Transmission Date: 20071010
  Serious: Yes (Other)
  Sender: FDA-Public Use
  Company Number: THYM-11335

PATIENT
  Age: 54 Year
  Sex: Female
  Weight: 77.1 kg

DRUGS (5)
  1. THYMOGLOBULIN [Suspect]
     Indication: LIVER TRANSPLANT
     Dosage: 4.5 MG/KG IV
     Route: 042
     Dates: start: 20051219, end: 20051225
  2. NEORAL [Concomitant]
  3. METOPROLOL SUCCINATE [Concomitant]
  4. RANITIDINE [Concomitant]
  5. SINEMET [Concomitant]

REACTIONS (1)
  - LIVER TRANSPLANT REJECTION [None]
